FAERS Safety Report 5522919-0 (Version None)
Quarter: 2007Q4

REPORT INFORMATION
  Report Type: 
  Country: None (occurrence: None)
  Receive Date: 20071116
  Receipt Date: 20071102
  Transmission Date: 20080405
  Serious: Yes (Other)
  Sender: FDA-Public Use
  Company Number: US021526

PATIENT
  Age: 57 Year
  Sex: Male
  Weight: 118.8424 kg

DRUGS (8)
  1. ACTIQ [Suspect]
     Indication: BACK PAIN
     Dosage: 14400-16800UG QD BUCCAL
     Route: 002
     Dates: start: 20040101, end: 20061201
  2. ACTIQ [Suspect]
     Indication: BACK PAIN
     Dosage: 11200 UG QD BUCCAL
     Route: 002
     Dates: start: 20061201
  3. PERCOCET [Concomitant]
  4. WELLBUTRIN [Concomitant]
  5. METHADOSE [Concomitant]
  6. EFFEXOR [Concomitant]
  7. TORSEMIDE [Concomitant]
  8. WELLBUTRIN XL [Concomitant]

REACTIONS (22)
  - ANXIETY [None]
  - BONE PAIN [None]
  - CONFUSIONAL STATE [None]
  - CONSTIPATION [None]
  - DEEP VEIN THROMBOSIS [None]
  - DIPLOPIA [None]
  - DIZZINESS [None]
  - DRY MOUTH [None]
  - GAIT DISTURBANCE [None]
  - GINGIVAL DISORDER [None]
  - HEADACHE [None]
  - INCORRECT DOSE ADMINISTERED [None]
  - INSOMNIA [None]
  - NECK PAIN [None]
  - OEDEMA PERIPHERAL [None]
  - PHARMACEUTICAL PRODUCT COMPLAINT [None]
  - PILOERECTION [None]
  - RASH [None]
  - SKIN LESION [None]
  - THERAPY REGIMEN CHANGED [None]
  - TOOTH LOSS [None]
  - VISUAL DISTURBANCE [None]
